FAERS Safety Report 6271386-0 (Version None)
Quarter: 2009Q3

REPORT INFORMATION
  Report Type: 
  Country: None (occurrence: None)
  Receive Date: 20090717
  Receipt Date: 20090707
  Transmission Date: 20100115
  Serious: Yes (Congenital Anomaly)
  Sender: FDA-Public Use
  Company Number: FR-ROCHE-642495

PATIENT
  Sex: Female

DRUGS (3)
  1. ROFERON-A [Suspect]
     Route: 065
     Dates: start: 20080724, end: 20080904
  2. ROFERON-A [Suspect]
     Route: 065
     Dates: start: 20080904, end: 20080918
  3. NILOTINIB [Suspect]
     Route: 048
     Dates: end: 20080724

REACTIONS (2)
  - EXOMPHALOS [None]
  - FOETAL MALFORMATION [None]
